FAERS Safety Report 8542231-5 (Version None)
Quarter: 2012Q3

REPORT INFORMATION
  Report Type: 
  Country: None (occurrence: None)
  Receive Date: 20120726
  Receipt Date: 20111013
  Transmission Date: 20120928
  Serious: No
  Sender: FDA-Public Use
  Company Number: US-ASTRAZENECA-2011SE61610

PATIENT
  Age: 39 Year
  Sex: Male
  Weight: 113.4 kg

DRUGS (1)
  1. SEROQUEL XR [Suspect]
     Indication: BIPOLAR II DISORDER
     Route: 048
     Dates: start: 20110501

REACTIONS (6)
  - SOMNOLENCE [None]
  - NAUSEA [None]
  - IMPATIENCE [None]
  - DRUG DOSE OMISSION [None]
  - HEADACHE [None]
  - LETHARGY [None]
